FAERS Safety Report 11740148 (Version 2)
Quarter: 2015Q4

REPORT INFORMATION
  Report Type: Spontaneous
  Country: US (occurrence: US)
  Receive Date: 20151110
  Receipt Date: 20151120
  Transmission Date: 20160304
  Serious: No
  Sender: FDA-Public Use
  Company Number: US-ELI_LILLY_AND_COMPANY-US201109007687

PATIENT
  Age: 47 Year
  Sex: Female

DRUGS (3)
  1. FORTEO [Suspect]
     Active Substance: TERIPARATIDE
     Dosage: 20 UG, QD
  2. FORTEO [Suspect]
     Active Substance: TERIPARATIDE
     Dosage: 20 UG, QD
     Route: 065
  3. FORTEO [Suspect]
     Active Substance: TERIPARATIDE
     Indication: OSTEOPOROSIS
     Dosage: 20 UG, QD
     Route: 065
     Dates: start: 20110811

REACTIONS (13)
  - Osteoporosis [Unknown]
  - Wrist fracture [Unknown]
  - Blood glucose increased [Not Recovered/Not Resolved]
  - Contusion [Unknown]
  - Injection site bruising [Recovering/Resolving]
  - Emotional disorder [Unknown]
  - Blood calcium abnormal [Unknown]
  - Bronchitis [Unknown]
  - Vomiting [Unknown]
  - Alopecia [Not Recovered/Not Resolved]
  - Ligament rupture [Unknown]
  - Stress [Unknown]
  - Intentional product misuse [Unknown]

NARRATIVE: CASE EVENT DATE: 201110
